FAERS Safety Report 25275040 (Version 1)
Quarter: 2025Q2

REPORT INFORMATION
  Report Type: Spontaneous
  Country: US (occurrence: US)
  Receive Date: 20250506
  Receipt Date: 20250506
  Transmission Date: 20250716
  Serious: No
  Sender: MYLAN
  Company Number: US-MYLANLABS-2025M1037840

PATIENT
  Sex: Female

DRUGS (3)
  1. AZELASTINE [Suspect]
     Active Substance: AZELASTINE
     Indication: Product used for unknown indication
     Dosage: 0.1 PERCENT, BID (2 TIMES PER 1 DAY)
  2. CEFDINIR [Concomitant]
     Active Substance: CEFDINIR
     Indication: Product used for unknown indication
     Dosage: 300 MILLIGRAM, BID (2 TIMES PER 1 DAYS)
  3. OFLOXACIN [Concomitant]
     Active Substance: OFLOXACIN
     Dosage: UNK, QID ( 4 TIMES A DAY)

REACTIONS (1)
  - Sinusitis [Unknown]
